FAERS Safety Report 7489210-7 (Version None)
Quarter: 2011Q2

REPORT INFORMATION
  Report Type: 
  Country: None (occurrence: None)
  Receive Date: 20110518
  Receipt Date: 20110518
  Transmission Date: 20111010
  Serious: Yes (Hospitalization, Other)
  Sender: FDA-Public Use
  Company Number: DE-ABBOTT-11P-062-0703456-00

PATIENT
  Age: 39 Year
  Sex: Female

DRUGS (20)
  1. OXYCODONE HCL [Concomitant]
     Indication: PRODUCT USED FOR UNKNOWN INDICATION
  2. HUMIRA [Suspect]
     Indication: RHEUMATOID ARTHRITIS
     Route: 058
     Dates: start: 20050601, end: 20051201
  3. HCQ/CQ [Concomitant]
     Indication: PRODUCT USED FOR UNKNOWN INDICATION
     Dates: start: 20060501, end: 20060701
  4. METHOTREXATE [Concomitant]
  5. MTX [Concomitant]
     Indication: PRODUCT USED FOR UNKNOWN INDICATION
     Dosage: PER OS, THURSDAYS
     Dates: start: 20050601
  6. SASP [Concomitant]
     Indication: PRODUCT USED FOR UNKNOWN INDICATION
     Dates: start: 20060501, end: 20060701
  7. NOVAMINSULFON 500 MG QID [Concomitant]
     Indication: PRODUCT USED FOR UNKNOWN INDICATION
  8. HUMIRA [Suspect]
     Route: 058
     Dates: start: 20100201
  9. METHOTREXATE [Concomitant]
  10. LEFLUNOMIDE [Concomitant]
  11. PREDNISOLONE [Concomitant]
     Indication: PRODUCT USED FOR UNKNOWN INDICATION
  12. TILIDIN 50/4 RET [Concomitant]
     Indication: PRODUCT USED FOR UNKNOWN INDICATION
  13. PANTOPRAZOLE [Concomitant]
     Indication: PRODUCT USED FOR UNKNOWN INDICATION
  14. METHOTREXATE [Concomitant]
  15. DICLOFENAC 75 MG [Concomitant]
     Indication: PRODUCT USED FOR UNKNOWN INDICATION
  16. METHOTREXATE [Concomitant]
     Indication: PRODUCT USED FOR UNKNOWN INDICATION
  17. FOLIC ACID 20 MG [Concomitant]
     Indication: PRODUCT USED FOR UNKNOWN INDICATION
     Dosage: FRIDAYS
  18. LEFLUNOMIDE [Concomitant]
     Indication: PRODUCT USED FOR UNKNOWN INDICATION
     Dates: start: 20050901
  19. CIPRO [Concomitant]
     Indication: PRODUCT USED FOR UNKNOWN INDICATION
  20. CIPRAMIL 20 MG [Concomitant]
     Indication: PRODUCT USED FOR UNKNOWN INDICATION

REACTIONS (19)
  - TENOSYNOVITIS [None]
  - SINUSITIS [None]
  - PAIN [None]
  - LIVIDITY [None]
  - PERIPHERAL COLDNESS [None]
  - JOINT RANGE OF MOTION DECREASED [None]
  - ILL-DEFINED DISORDER [None]
  - HYPERTHERMIA [None]
  - RHEUMATOID NODULE [None]
  - MUSCULOSKELETAL STIFFNESS [None]
  - FOOT DEFORMITY [None]
  - OEDEMA PERIPHERAL [None]
  - ARTHRALGIA [None]
  - TREATMENT NONCOMPLIANCE [None]
  - IMPAIRED HEALING [None]
  - SKIN MACERATION [None]
  - ARTHRODESIS [None]
  - PAIN IN EXTREMITY [None]
  - MUSCULAR WEAKNESS [None]
